FAERS Safety Report 4353194-0 (Version None)
Quarter: 2004Q2

REPORT INFORMATION
  Report Type: 
  Country: None (occurrence: None)
  Receive Date: 20040503
  Receipt Date: 20040503
  Transmission Date: 20050107
  Serious: Yes (Hospitalization)
  Sender: FDA-Public Use
  Company Number: None

PATIENT
  Age: 35 Year
  Sex: Male
  Weight: 92.0802 kg

DRUGS (5)
  1. PEG-INTRON [Suspect]
     Indication: HEPATITIS C
     Dosage: 143 MCG QW SUBCUTANEOUS
     Route: 058
     Dates: start: 20040322, end: 20040331
  2. REBETOL [Suspect]
     Indication: HEPATITIS C
     Dosage: 600 MG BID ORAL
     Route: 048
     Dates: start: 20040312, end: 20040331
  3. PROZAC [Concomitant]
  4. PRINIVIL [Concomitant]
  5. ALLEGRA [Concomitant]

REACTIONS (1)
  - PSYCHOTIC DISORDER [None]
